FAERS Safety Report 18630207 (Version 3)
Quarter: 2022Q3

REPORT INFORMATION
  Report Type: Spontaneous
  Country: US (occurrence: US)
  Receive Date: 20201217
  Receipt Date: 20220204
  Transmission Date: 20221027
  Serious: No
  Sender: FDA-Public Use
  Company Number: US-VERTEX PHARMACEUTICALS-2020-024590

PATIENT
  Age: 21 Year
  Sex: Female

DRUGS (17)
  1. TRIKAFTA [Suspect]
     Active Substance: ELEXACAFTOR\IVACAFTOR\TEZACAFTOR
     Indication: Cystic fibrosis
     Dosage: 2 TABS  AM; 1 TAB PM
     Route: 048
     Dates: start: 20191127
  2. PROVENTIL [Concomitant]
     Active Substance: ALBUTEROL
     Dosage: 1 VIAL FOR NEBULATION
     Route: 055
     Dates: start: 20200109
  3. ALBUTEROL SULFATE [Concomitant]
     Active Substance: ALBUTEROL SULFATE
     Dosage: 90 MCG/ ACUTATION; 2 PUFFS
     Dates: start: 20210329
  4. ALBUTEROL SULFATE [Concomitant]
     Active Substance: ALBUTEROL SULFATE
     Dosage: 3 PUFFS AS INSTRUCTED FOR SPUTUM
     Dates: start: 20220310
  5. VITAMIN C [Concomitant]
     Active Substance: ASCORBIC ACID
     Dosage: ONCE DAILY
     Route: 048
     Dates: start: 20191124
  6. PULMOZYME [Concomitant]
     Active Substance: DORNASE ALFA
     Dosage: 2.5 ML (2.5 MG PER DOSE)
     Route: 055
     Dates: start: 20190729
  7. EPIPEN [Concomitant]
     Active Substance: EPINEPHRINE
     Dosage: 0.3MG/0.3 ML AS NEEDED
     Route: 030
     Dates: start: 20190522
  8. FLONASE [Concomitant]
     Active Substance: FLUTICASONE PROPIONATE
     Dosage: 50 MCG/ ACUTATION 1 SPRAY
     Route: 055
     Dates: start: 20171013
  9. CLARITIN [Concomitant]
     Active Substance: LORATADINE
  10. ZENPEP [Concomitant]
     Active Substance: PANCRELIPASE AMYLASE\PANCRELIPASE LIPASE\PANCRELIPASE PROTEASE
     Dosage: 50K-126K-1683 CAPS 3 TIMES DAILY (3 WITH SNACKS)
     Dates: start: 20220310
  11. MIRALAX [Concomitant]
     Active Substance: POLYETHYLENE GLYCOL 3350
     Dosage: 17G DAILY AS NEEDED
     Route: 048
     Dates: start: 20220118
  12. SODIUM CHLORIDE [Concomitant]
     Active Substance: SODIUM CHLORIDE
     Dosage: 7% CONCE. 4 MLS EVERY 1 ML
     Dates: start: 20220310
  13. SODIUM CHLORIDE [Concomitant]
     Active Substance: SODIUM CHLORIDE
     Dosage: 3% CONC. 4 MLS
  14. TOBI PODHALER [Concomitant]
     Active Substance: TOBRAMYCIN
  15. LACTOBACILLUS COMBO [Concomitant]
     Dosage: 1 CAPSULE DAILY
     Route: 048
  16. PROTONIX [Concomitant]
     Active Substance: PANTOPRAZOLE SODIUM
     Dosage: 90 MCG/ACTUATION; 2 PUFFS INTO LUNGS EVERY 4 HRS AS NEEDED FOR WHEEZING
     Dates: start: 20220310
  17. LEVAQUIN [Concomitant]
     Active Substance: LEVOFLOXACIN
     Dosage: 1 TAB DAILY FOR 14 DAYS
     Route: 048
     Dates: start: 20220818, end: 20220901

REACTIONS (1)
  - Acne [Not Recovered/Not Resolved]

NARRATIVE: CASE EVENT DATE: 20191101
